FAERS Safety Report 10760617 (Version 2)
Quarter: 2015Q1

REPORT INFORMATION
  Report Type: Report from Study
  Country: CN (occurrence: CN)
  Receive Date: 20150204
  Receipt Date: 20150318
  Transmission Date: 20150721
  Serious: Yes (Death, Hospitalization)
  Sender: FDA-Public Use
  Company Number: CN-ROCHE-1475807

PATIENT
  Age: 48 Year
  Sex: Female
  Weight: 50 kg

DRUGS (2)
  1. ENTECAVIR. [Concomitant]
     Active Substance: ENTECAVIR
     Route: 065
     Dates: start: 20131001, end: 20140105
  2. PEG-INTERFERON ALFA 2A [Suspect]
     Active Substance: PEGINTERFERON ALFA-2A
     Indication: CHRONIC HEPATITIS B
     Dosage: ROUTE: IH, LAST DOSE PRIOR TO SAE: 30/DEC/2010
     Route: 065
     Dates: start: 20091021

REACTIONS (3)
  - Hepatocellular carcinoma [Not Recovered/Not Resolved]
  - Multi-organ failure [Fatal]
  - Metastases to lung [Fatal]

NARRATIVE: CASE EVENT DATE: 20130903
